FAERS Safety Report 7320560-0 (Version None)
Quarter: 2011Q1

REPORT INFORMATION
  Report Type: 
  Country: None (occurrence: None)
  Receive Date: 20110228
  Receipt Date: 20110218
  Transmission Date: 20110831
  Serious: Yes (Other)
  Sender: FDA-Public Use
  Company Number: FR-US-EMD SERONO, INC.-7042796

PATIENT
  Sex: Male

DRUGS (2)
  1. REBIF [Suspect]
     Indication: MULTIPLE SCLEROSIS
     Route: 058
     Dates: start: 20101115, end: 20110214
  2. ASPIRIN [Suspect]
     Indication: INFLUENZA LIKE ILLNESS
     Dates: start: 20101115

REACTIONS (7)
  - ALANINE AMINOTRANSFERASE INCREASED [None]
  - MALAISE [None]
  - GAMMA-GLUTAMYLTRANSFERASE INCREASED [None]
  - FATIGUE [None]
  - ASPARTATE AMINOTRANSFERASE INCREASED [None]
  - COLD SWEAT [None]
  - JAUNDICE [None]
